FAERS Safety Report 19960090 (Version 1)
Quarter: 2021Q4

REPORT INFORMATION
  Report Type: Spontaneous
  Country: US (occurrence: US)
  Receive Date: 20211013
  Receipt Date: 20211013
  Transmission Date: 20220303
  Serious: Yes (Hospitalization)
  Sender: FDA-Public Use
  Company Number: None

PATIENT
  Sex: Female

DRUGS (2)
  1. EVOTAZ [Suspect]
     Active Substance: ATAZANAVIR SULFATE\COBICISTAT
     Indication: HIV infection
     Dosage: ?          OTHER DOSE:300/150MG;
     Route: 048
     Dates: start: 20190417
  2. DESCOVY [Suspect]
     Active Substance: EMTRICITABINE\TENOFOVIR ALAFENAMIDE FUMARATE
     Indication: HIV infection
     Dosage: ?          OTHER DOSE:200/25MG;
     Route: 048
     Dates: start: 20190417

REACTIONS (2)
  - Therapy interrupted [None]
  - Condition aggravated [None]
